FAERS Safety Report 7966743-8 (Version None)
Quarter: 2011Q4

REPORT INFORMATION
  Report Type: 
  Country: None (occurrence: None)
  Receive Date: 20111209
  Receipt Date: 20111202
  Transmission Date: 20120403
  Serious: No
  Sender: FDA-Public Use
  Company Number: US-BIOGENIDEC-2011BI046144

PATIENT
  Sex: Male
  Weight: 61 kg

DRUGS (7)
  1. DULOXETINE HYDROCHLORIDE [Concomitant]
  2. OXYCODONE HCL [Concomitant]
  3. MIRAPEX [Concomitant]
  4. CYMBALTA [Concomitant]
  5. TYSABRI [Suspect]
     Indication: MULTIPLE SCLEROSIS
     Route: 042
     Dates: start: 20110609
  6. TADALAFIL [Concomitant]
  7. CIALIS [Concomitant]

REACTIONS (10)
  - INTERVERTEBRAL DISC PROTRUSION [None]
  - STRESS [None]
  - DEPRESSED MOOD [None]
  - PALLOR [None]
  - ASTHENIA [None]
  - SPINAL OSTEOARTHRITIS [None]
  - VERTEBRAL FORAMINAL STENOSIS [None]
  - MOOD ALTERED [None]
  - ANXIETY [None]
  - BACK PAIN [None]
